FAERS Safety Report 8239932-5 (Version None)
Quarter: 2012Q1

REPORT INFORMATION
  Report Type: 
  Country: None (occurrence: None)
  Receive Date: 20120328
  Receipt Date: 20120327
  Transmission Date: 20120608
  Serious: Yes (Other)
  Sender: FDA-Public Use
  Company Number: JP-JNJFOC-20120305853

PATIENT
  Age: 13 Year
  Sex: Female
  Weight: 31.6 kg

DRUGS (4)
  1. FENTANYL CITRATE [Suspect]
     Dosage: 3 AMPULES
     Route: 042
  2. FENTANYL CITRATE [Suspect]
     Dosage: 20 AMPULES - 18 AMPULES
     Route: 042
     Dates: end: 20120306
  3. ANTI-CANCER DRUG [Suspect]
     Indication: NEOPLASM MALIGNANT
     Route: 065
  4. FENTANYL CITRATE [Suspect]
     Indication: CANCER PAIN
     Dosage: 8 AMPOULES
     Route: 042

REACTIONS (4)
  - DECREASED APPETITE [None]
  - PAIN [None]
  - WEIGHT DECREASED [None]
  - GASTROINTESTINAL HYPOMOTILITY [None]
